FAERS Safety Report 8725550 (Version 2)
Quarter: 2013Q2

REPORT INFORMATION
  Report Type: Spontaneous
  Country: US (occurrence: US)
  Receive Date: 20120815
  Receipt Date: 20130416
  Transmission Date: 20140414
  Serious: No
  Sender: FDA-Public Use
  Company Number: US-ASTRAZENECA-2012SE44755

PATIENT
  Age: 63 Year
  Sex: Female
  Weight: 68 kg

DRUGS (9)
  1. SEROQUEL [Suspect]
     Indication: BIPOLAR II DISORDER
     Route: 048
     Dates: start: 2011
  2. PAXIL [Suspect]
     Route: 048
  3. TYLENOL [Concomitant]
     Indication: HEADACHE
  4. ADVIL [Concomitant]
     Indication: HEADACHE
  5. LEXAPRO [Concomitant]
  6. BUSPAR [Concomitant]
  7. WELLBUTRIN SR [Concomitant]
  8. ATIVAN [Concomitant]
  9. VICODIN [Concomitant]

REACTIONS (8)
  - Multiple allergies [Unknown]
  - Depression [Unknown]
  - Mania [Unknown]
  - Bronchitis [Unknown]
  - Cough [Unknown]
  - Adverse event [Unknown]
  - Anxiety [Unknown]
  - Abnormal dreams [Unknown]
